FAERS Safety Report 6882526-4 (Version None)
Quarter: 2010Q3

REPORT INFORMATION
  Report Type: 
  Country: None (occurrence: None)
  Receive Date: 20100729
  Receipt Date: 20100727
  Transmission Date: 20110219
  Serious: Yes (Death)
  Sender: FDA-Public Use
  Company Number: US-GILEAD-2010-0030352

PATIENT
  Sex: Male

DRUGS (20)
  1. LETAIRIS [Suspect]
     Indication: PULMONARY ARTERIAL HYPERTENSION
     Route: 048
     Dates: start: 20080814
  2. REVATIO [Concomitant]
  3. ASPIRIN [Concomitant]
  4. METOPROLOL TARTRATE [Concomitant]
  5. DIGOXIN [Concomitant]
  6. SIMVASTATIN [Concomitant]
  7. CILOSTAZOL [Concomitant]
  8. FLONASE [Concomitant]
  9. SERTRALINE HYDROCHLORIDE [Concomitant]
  10. METRONIDAZOLE [Concomitant]
  11. PROCRIT [Concomitant]
  12. NEPHROCAPS [Concomitant]
  13. PRILOSEC [Concomitant]
  14. RENAGEL [Concomitant]
  15. ZOLPIDEM [Concomitant]
  16. ALLOPURINOL [Concomitant]
  17. HYDROXYUREA [Concomitant]
  18. INDOMETHACIN [Concomitant]
  19. VITAMIN D3 [Concomitant]
  20. CALCIUM CARBONATE [Concomitant]

REACTIONS (3)
  - CARDIAC ARREST [None]
  - MYOCARDIAL INFARCTION [None]
  - PULMONARY ARTERIAL HYPERTENSION [None]
